FAERS Safety Report 19292828 (Version 2)
Quarter: 2021Q4

REPORT INFORMATION
  Report Type: Report from Study
  Country: US (occurrence: US)
  Receive Date: 20210524
  Receipt Date: 20211113
  Transmission Date: 20220303
  Serious: Yes (Hospitalization, Other)
  Sender: FDA-Public Use
  Company Number: US-NOVARTISPH-NVSC2021US106797

PATIENT
  Age: 44 Year
  Sex: Female

DRUGS (1)
  1. ENTRESTO [Suspect]
     Active Substance: SACUBITRIL\VALSARTAN
     Indication: Product used for unknown indication
     Dosage: UNK
     Route: 065

REACTIONS (10)
  - Tachycardia [Unknown]
  - Atrial fibrillation [Unknown]
  - Neoplasm malignant [Unknown]
  - Ejection fraction decreased [Unknown]
  - Cardiac disorder [Unknown]
  - Dysphonia [Unknown]
  - Hypoaesthesia [Unknown]
  - Endometriosis [Unknown]
  - Hyperplasia [Unknown]
  - Cough [Unknown]
